FAERS Safety Report 11405425 (Version 3)
Quarter: 2015Q3

REPORT INFORMATION
  Report Type: Spontaneous
  Country: JP (occurrence: JP)
  Receive Date: 20150821
  Receipt Date: 20150903
  Transmission Date: 20151125
  Serious: Yes (Death, Hospitalization, Other)
  Sender: FDA-Public Use
  Company Number: JP-009507513-1506JPN013959

PATIENT
  Sex: Female
  Weight: 63 kg

DRUGS (7)
  1. ALFAROL [Concomitant]
     Active Substance: ALFACALCIDOL
     Indication: OSTEOPOROSIS
     Dosage: 0.5 MICROGRAM, FORMULATION- POR, DIVIDED DOSE FREQUENCY UNKNOWN
     Route: 048
  2. RINDERON V [Suspect]
     Active Substance: BETAMETHASONE VALERATE
     Indication: SYSTEMIC LUPUS ERYTHEMATOSUS
     Dosage: 0.5 MG, DAILY
     Route: 048
  3. FOSAMAC TABLETS 35MG [Suspect]
     Active Substance: ALENDRONATE SODIUM
     Indication: OSTEOPOROSIS
     Dosage: 35 MG, QW
     Route: 048
     Dates: start: 200205, end: 201103
  4. RINDERON V [Suspect]
     Active Substance: BETAMETHASONE VALERATE
     Dosage: 2.5 MG, DAILY
     Route: 048
  5. PARIET [Suspect]
     Active Substance: RABEPRAZOLE SODIUM
     Indication: SYSTEMIC LUPUS ERYTHEMATOSUS
     Dosage: 10 MG, QD
     Route: 048
  6. PREDNISOLONE. [Concomitant]
     Active Substance: PREDNISOLONE
     Dosage: DAILY DOSE UNKNOWN
     Route: 065
  7. VOGLIBOSE [Concomitant]
     Active Substance: VOGLIBOSE
     Dosage: DAILY DOSAGE UNKNOWN
     Route: 048

REACTIONS (3)
  - Death [Fatal]
  - Atypical femur fracture [Recovering/Resolving]
  - Atypical femur fracture [Recovering/Resolving]

NARRATIVE: CASE EVENT DATE: 2005
